FAERS Safety Report 10188659 (Version 2)
Quarter: 2016Q2

REPORT INFORMATION
  Report Type: Spontaneous
  Country: US (occurrence: US)
  Receive Date: 20140522
  Receipt Date: 20160524
  Transmission Date: 20160815
  Serious: No
  Sender: FDA-Public Use
  Company Number: US-SA-2014SA017710

PATIENT
  Age: 78 Year
  Sex: Female

DRUGS (5)
  1. SOLOSTAR [Concomitant]
     Active Substance: DEVICE
     Dosage: TAKEN FROM- A FEW DAYS
  2. GLIMEPIRIDE. [Concomitant]
     Active Substance: GLIMEPIRIDE
  3. CELEBREX [Concomitant]
     Active Substance: CELECOXIB
  4. LANTUS SOLOSTAR [Suspect]
     Active Substance: INSULIN GLARGINE
     Dosage: DOSE:10 UNIT(S)
     Route: 065
     Dates: start: 2014
  5. LANTUS SOLOSTAR [Suspect]
     Active Substance: INSULIN GLARGINE
     Dosage: TAKEN FROM- A FEW DAYS, DOSE- 4-8 UNITS
     Route: 058

REACTIONS (8)
  - Feeling abnormal [Unknown]
  - Visual acuity reduced [Unknown]
  - Fatigue [Unknown]
  - Dry skin [Unknown]
  - Dry eye [Unknown]
  - Arthralgia [Unknown]
  - Gastric disorder [Unknown]
  - Amnesia [Unknown]

NARRATIVE: CASE EVENT DATE: 20140209
